FAERS Safety Report 6182650-8 (Version None)
Quarter: 2009Q2

REPORT INFORMATION
  Report Type: 
  Country: None (occurrence: None)
  Receive Date: 20090507
  Receipt Date: 20090428
  Transmission Date: 20091009
  Serious: Yes (Hospitalization, Disabling)
  Sender: FDA-Public Use
  Company Number: A0718983A

PATIENT
  Age: 65 Year
  Sex: Male
  Weight: 95.5 kg

DRUGS (7)
  1. AVANDIA [Suspect]
     Dosage: 2MG TWICE PER DAY
     Route: 048
     Dates: start: 20060501, end: 20070101
  2. ASPIRIN [Concomitant]
  3. GLYBURIDE [Concomitant]
  4. HYDRALAZINE HCL [Concomitant]
  5. OMEPRAZOLE [Concomitant]
  6. LANTUS [Concomitant]
  7. GLIPIZIDE [Concomitant]

REACTIONS (2)
  - CARDIAC FAILURE CONGESTIVE [None]
  - MYOCARDIAL INFARCTION [None]
